FAERS Safety Report 6532752-9 (Version None)
Quarter: 2010Q1

REPORT INFORMATION
  Report Type: 
  Country: None (occurrence: None)
  Receive Date: 20100111
  Receipt Date: 20091230
  Transmission Date: 20100710
  Serious: Yes (Other)
  Sender: FDA-Public Use
  Company Number: PHHY2009FR59832

PATIENT
  Age: 63 Year
  Sex: Female

DRUGS (1)
  1. ACLASTA [Suspect]
     Indication: OSTEOPOROSIS
     Dosage: UNK
     Dates: start: 20090701

REACTIONS (5)
  - ASTHENIA [None]
  - EYE DISORDER [None]
  - EYE OEDEMA [None]
  - HEADACHE [None]
  - HERPES ZOSTER OPHTHALMIC [None]
